FAERS Safety Report 19305449 (Version 3)
Quarter: 2021Q3

REPORT INFORMATION
  Report Type: Spontaneous
  Country: CA (occurrence: CA)
  Receive Date: 20210525
  Receipt Date: 20210701
  Transmission Date: 20211014
  Serious: Yes (Other)
  Sender: FDA-Public Use
  Company Number: CA-PFIZER INC-2021032979

PATIENT
  Age: 45 Year
  Sex: Female

DRUGS (22)
  1. ZIRABEV [Suspect]
     Active Substance: BEVACIZUMAB-BVZR
     Dosage: 15 MG/KG, EVERY 2 WEEKS
     Route: 042
     Dates: start: 20210209
  2. ZIRABEV [Suspect]
     Active Substance: BEVACIZUMAB-BVZR
     Dosage: 800 MG,TIME 14:30, TOTAL IV VOLUME 100ML
     Route: 042
  3. ZIRABEV [Suspect]
     Active Substance: BEVACIZUMAB-BVZR
     Dosage: 15 MG/KG, EVERY 2 WEEKS
     Route: 042
     Dates: start: 20210513
  4. ZIRABEV [Suspect]
     Active Substance: BEVACIZUMAB-BVZR
     Dosage: 15 MG/KG, EVERY 2 WEEKS
     Route: 042
     Dates: start: 20210302
  5. ZIRABEV [Suspect]
     Active Substance: BEVACIZUMAB-BVZR
     Dosage: 115 MG, TIME ADMINISTERED: 14:30, TOTAL IV VOLUME 100ML
     Route: 042
  6. ZIRABEV [Suspect]
     Active Substance: BEVACIZUMAB-BVZR
     Dosage: 800 MG,TIME 10:20, TOTAL IV VOLUME 100ML
     Route: 042
  7. ZIRABEV [Suspect]
     Active Substance: BEVACIZUMAB-BVZR
     Dosage: 115 MG,TIME 10:50, TOTAL IV VOLUME 100ML
     Route: 042
  8. ZIRABEV [Suspect]
     Active Substance: BEVACIZUMAB-BVZR
     Dosage: 115 MG,TIME 10:20, TOTAL IV VOLUME 100ML
     Route: 042
  9. DEXAMETHASONE. [Concomitant]
     Active Substance: DEXAMETHASONE
     Dosage: 8 MG
     Route: 048
  10. ZIRABEV [Suspect]
     Active Substance: BEVACIZUMAB-BVZR
     Dosage: 15 MG/KG, EVERY 3 WEEKS
     Route: 042
     Dates: start: 20210603, end: 20210603
  11. HEPARIN [Concomitant]
     Active Substance: HEPARIN SODIUM
     Dosage: 5 ML
  12. ZIRABEV [Suspect]
     Active Substance: BEVACIZUMAB-BVZR
     Dosage: 15 MG/KG, EVERY 2 WEEKS
     Route: 042
     Dates: start: 20210209
  13. ZIRABEV [Suspect]
     Active Substance: BEVACIZUMAB-BVZR
     Dosage: 15 MG/KG, EVERY 2 WEEKS
     Route: 042
     Dates: start: 20210302
  14. DEXAMETHASONE. [Concomitant]
     Active Substance: DEXAMETHASONE
     Dosage: 10 MG
     Route: 048
  15. ZIRABEV [Suspect]
     Active Substance: BEVACIZUMAB-BVZR
     Dosage: 500 MG, 15 MG/KG, EVERY 2 WEEKS
     Route: 042
     Dates: start: 20210209, end: 20210209
  16. ZIRABEV [Suspect]
     Active Substance: BEVACIZUMAB-BVZR
     Dosage: 15 MG/KG, EVERY 2 WEEKS
     Route: 042
     Dates: start: 20210209, end: 20210603
  17. ZIRABEV [Suspect]
     Active Substance: BEVACIZUMAB-BVZR
     Dosage: 800 MG,TIME 10:50, TOTAL IV VOLUME 100ML
     Route: 042
  18. DEXAMETHASONE. [Concomitant]
     Active Substance: DEXAMETHASONE
     Dosage: 12 MG
     Route: 048
  19. ZIRABEV [Suspect]
     Active Substance: BEVACIZUMAB-BVZR
     Indication: BRAIN OEDEMA
     Dosage: 500 MG, 15 MG/KG, EVERY 2 WEEKS
     Route: 042
     Dates: start: 20210209, end: 20210209
  20. ZIRABEV [Suspect]
     Active Substance: BEVACIZUMAB-BVZR
     Dosage: 500 MG, 15 MG/KG, EVERY 2 WEEKS
     Route: 042
     Dates: start: 20210209, end: 20210209
  21. ZIRABEV [Suspect]
     Active Substance: BEVACIZUMAB-BVZR
     Dosage: 500 MG, 15 MG/KG, EVERY 2 WEEKS
     Route: 042
     Dates: start: 20210209, end: 20210209
  22. ZIRABEV [Suspect]
     Active Substance: BEVACIZUMAB-BVZR
     Dosage: 15 MG/KG, EVERY 2 WEEKS
     Route: 042
     Dates: start: 20210513

REACTIONS (19)
  - Myopathy [Unknown]
  - Urinary tract infection [Unknown]
  - Paraesthesia oral [Unknown]
  - Off label use [Unknown]
  - Eye movement disorder [Unknown]
  - Muscular weakness [Unknown]
  - Skin fissures [Recovering/Resolving]
  - Gastrointestinal motility disorder [Unknown]
  - Nasal crusting [Unknown]
  - Constipation [Recovered/Resolved]
  - Anxiety [Unknown]
  - Asthenia [Unknown]
  - Muscle spasms [Unknown]
  - Tachycardia [Not Recovered/Not Resolved]
  - Mobility decreased [Unknown]
  - Blood pressure increased [Recovered/Resolved]
  - Weight increased [Unknown]
  - Nasal dryness [Unknown]
  - Ocular discomfort [Unknown]

NARRATIVE: CASE EVENT DATE: 2021
